FAERS Safety Report 6138262-5 (Version None)
Quarter: 2009Q1

REPORT INFORMATION
  Report Type: 
  Country: None (occurrence: None)
  Receive Date: 20090331
  Receipt Date: 20090320
  Transmission Date: 20090719
  Serious: Yes (Hospitalization)
  Sender: FDA-Public Use
  Company Number: B0566077A

PATIENT
  Sex: Male

DRUGS (4)
  1. ONDANSETRON HCL [Suspect]
     Dosage: 8MG PER DAY
     Route: 042
     Dates: start: 20090225, end: 20090225
  2. AVASTIN [Suspect]
     Dosage: 350MG PER DAY
     Route: 042
     Dates: start: 20090225, end: 20090225
  3. ELOXATIN [Suspect]
     Dosage: 155MG CYCLIC
     Route: 042
     Dates: start: 20090225, end: 20090225
  4. SOLU-MEDROL [Concomitant]
     Route: 065
     Dates: start: 20090225, end: 20090225

REACTIONS (2)
  - ERYTHEMA [None]
  - GRAND MAL CONVULSION [None]
